FAERS Safety Report 7820141-6 (Version None)
Quarter: 2011Q4

REPORT INFORMATION
  Report Type: 
  Country: None (occurrence: None)
  Receive Date: 20111018
  Receipt Date: 20111012
  Transmission Date: 20120403
  Serious: Yes (Death)
  Sender: FDA-Public Use
  Company Number: US-PFIZER INC-2011244489

PATIENT
  Sex: Male

DRUGS (10)
  1. FENTANYL [Concomitant]
  2. HYDROMORPHONE [Concomitant]
  3. FUROSEMIDE [Concomitant]
  4. ONDANSETRON [Concomitant]
  5. NORCO [Concomitant]
  6. AUGMENTIN '125' [Concomitant]
  7. OMEPRAZOLE [Concomitant]
  8. PROCHLORPERAZINE [Concomitant]
  9. XALKORI [Suspect]
     Indication: NON-SMALL CELL LUNG CANCER
     Dosage: 250 MG, 2X/DAY
     Route: 048
     Dates: start: 20111006, end: 20111001
  10. METOCLOPRAMIDE [Concomitant]

REACTIONS (1)
  - DEATH [None]
